FAERS Safety Report 9303314 (Version 2)
Quarter: 2013Q2

REPORT INFORMATION
  Report Type: Spontaneous
  Country: ES (occurrence: ES)
  Receive Date: 20130522
  Receipt Date: 20130611
  Transmission Date: 20140414
  Serious: Yes (Hospitalization, Other)
  Sender: FDA-Public Use
  Company Number: ES-ROCHE-1226494

PATIENT
  Age: 57 Year
  Sex: Male

DRUGS (3)
  1. PEGASYS [Suspect]
     Indication: HEPATITIS C
     Route: 058
     Dates: start: 201211
  2. RIBAVIRIN [Suspect]
     Indication: HEPATITIS C
     Route: 048
     Dates: start: 201211
  3. VICTRELIS [Suspect]
     Indication: HEPATITIS C
     Dosage: 4CAPSULES THRICE/DAY.
     Route: 048
     Dates: start: 201212

REACTIONS (7)
  - Pulmonary embolism [Recovered/Resolved]
  - Myocardial infarction [Recovered/Resolved]
  - Deep vein thrombosis [Recovered/Resolved]
  - Muscle strain [Unknown]
  - Haemoglobin abnormal [Unknown]
  - Leukopenia [Unknown]
  - Pulmonary embolism [Unknown]
